FAERS Safety Report 10404185 (Version 1)
Quarter: 2014Q1

REPORT INFORMATION
  Report Type: Spontaneous
  Country: US (occurrence: None)
  Receive Date: 20131226
  Receipt Date: 20131226
  Transmission Date: 20141002
  Serious: Yes (Other)
  Sender: FDA-Public Use
  Company Number: PHEH2012US004798

PATIENT
  Age: 20 Year
  Sex: Male
  Weight: 140 kg

DRUGS (4)
  1. AFINITOR (RAD) UNKNOWN [Suspect]
     Indication: TUBEROUS SCLEROSIS
     Route: 048
     Dates: start: 20120226
  2. DEPAKOTE (VALPROATE SEMISODIUM) [Concomitant]
  3. LAMOTRIGINE (LAMOTRIGINE) [Concomitant]
  4. LACOSAMIDE (LACOSAMIDE) [Concomitant]

REACTIONS (5)
  - Convulsion [None]
  - Chapped lips [None]
  - Pallor [None]
  - Acne [None]
  - Dry skin [None]
